FAERS Safety Report 17340971 (Version 1)
Quarter: 2020Q1

REPORT INFORMATION
  Report Type: Spontaneous
  Country: US (occurrence: US)
  Receive Date: 20200129
  Receipt Date: 20200129
  Transmission Date: 20200409
  Serious: No
  Sender: FDA-Public Use
  Company Number: US-AMAG PHARMACEUTICALS, INC.-AMAG202000357

PATIENT
  Age: 76 Year
  Sex: Female

DRUGS (2)
  1. INTRAROSA [Suspect]
     Active Substance: PRASTERONE
     Indication: VULVOVAGINAL DISCOMFORT
     Dosage: SHE HAS SAMPLES AND USED 2 SAMPLES OF INTRAROSA
     Route: 067
     Dates: start: 202001
  2. INTRAROSA [Suspect]
     Active Substance: PRASTERONE
     Indication: DYSPAREUNIA

REACTIONS (3)
  - Vulvovaginal burning sensation [Recovered/Resolved]
  - Product administered at inappropriate site [Unknown]
  - Drug ineffective for unapproved indication [Unknown]

NARRATIVE: CASE EVENT DATE: 202001
